FAERS Safety Report 13493222 (Version 1)
Quarter: 2017Q2

REPORT INFORMATION
  Report Type: Spontaneous
  Country: US (occurrence: US)
  Receive Date: 20170427
  Receipt Date: 20170427
  Transmission Date: 20170830
  Serious: No
  Sender: FDA-Public Use
  Company Number: US-ROCHE-1357386

PATIENT
  Age: 44 Year
  Sex: Male
  Weight: 104.42 kg

DRUGS (11)
  1. DEXILANT [Concomitant]
     Active Substance: DEXLANSOPRAZOLE
     Route: 065
     Dates: start: 20140123
  2. CLINDAMYCIN PHOSPHATE. [Concomitant]
     Active Substance: CLINDAMYCIN PHOSPHATE
     Route: 065
     Dates: start: 20120618
  3. ONDANSETRON HCL [Concomitant]
     Active Substance: ONDANSETRON HYDROCHLORIDE
     Route: 065
     Dates: start: 20120618
  4. ONDANSETRON HCL [Concomitant]
     Active Substance: ONDANSETRON HYDROCHLORIDE
     Dosage: 8MG INTRAVENOUS ONCE SHORT OVER 15 MINUTES IN 50ML
     Route: 042
  5. SUCRALFATE SUSPENSION [Concomitant]
     Active Substance: SUCRALFATE
     Route: 065
     Dates: start: 20121024
  6. DIPHENHYDRAMINE HCL [Concomitant]
     Active Substance: DIPHENHYDRAMINE HYDROCHLORIDE
     Dosage: 1 - 2 TABLETS EVERY 4 - 6 HOURS FOR 30 DAYS WHEN REQUIRED
     Route: 048
     Dates: start: 20120616, end: 20120713
  7. ERIVEDGE [Suspect]
     Active Substance: VISMODEGIB
     Indication: BASAL CELL CARCINOMA
     Dosage: STARTED IN JUNE OR JULY 2012.
     Route: 048
     Dates: start: 20120618, end: 20140115
  8. AMBIEN [Concomitant]
     Active Substance: ZOLPIDEM TARTRATE
     Route: 065
     Dates: start: 20131001
  9. ZOFRAN [Concomitant]
     Active Substance: ONDANSETRON HYDROCHLORIDE
     Route: 065
     Dates: start: 20130924
  10. OMEPRAZOLE. [Concomitant]
     Active Substance: OMEPRAZOLE
     Route: 065
     Dates: start: 20121024
  11. ZOFRAN ODT [Concomitant]
     Active Substance: ONDANSETRON HYDROCHLORIDE
     Dosage: FORM: DISPERSIBLE TABLET
     Route: 065
     Dates: start: 20121022

REACTIONS (1)
  - Musculoskeletal chest pain [Recovered/Resolved]

NARRATIVE: CASE EVENT DATE: 20130515
